FAERS Safety Report 6544548-2 (Version None)
Quarter: 2010Q1

REPORT INFORMATION
  Report Type: 
  Country: None (occurrence: None)
  Receive Date: 20100120
  Receipt Date: 20100120
  Transmission Date: 20100710
  Serious: Yes (Death, Hospitalization)
  Sender: FDA-Public Use
  Company Number: None

PATIENT
  Sex: Female
  Weight: 48.64 kg

DRUGS (2)
  1. PACLITAXEL [Suspect]
     Dosage: 250 MG
     Dates: end: 20091217
  2. TOPOTECAN [Suspect]
     Dosage: 1.07 MG
     Dates: end: 20091219

REACTIONS (4)
  - ABDOMINAL PAIN [None]
  - ANAEMIA [None]
  - REFUSAL OF TREATMENT BY PATIENT [None]
  - VOMITING [None]
